FAERS Safety Report 7651348-9 (Version None)
Quarter: 2011Q3

REPORT INFORMATION
  Report Type: 
  Country: None (occurrence: None)
  Receive Date: 20110802
  Receipt Date: 20110720
  Transmission Date: 20111222
  Serious: Yes (Other)
  Sender: FDA-Public Use
  Company Number: PHHY2011FR65903

PATIENT
  Sex: Female

DRUGS (4)
  1. RASILEZ HCT [Suspect]
     Indication: HYPERTENSION
     Dosage: UNK UKN, UNK
     Dates: start: 20110716
  2. ZOCOR [Concomitant]
     Dosage: UNK UKN, UNK
  3. ESCITALOPRAM [Concomitant]
     Dosage: UNK UKN, UNK
  4. PREVISCAN [Concomitant]
     Dosage: UNK UKN, UNK

REACTIONS (6)
  - COLITIS [None]
  - ABDOMINAL PAIN UPPER [None]
  - FISTULA [None]
  - ANORECTAL DISCOMFORT [None]
  - DIARRHOEA [None]
  - DIVERTICULITIS [None]
